FAERS Safety Report 24163716 (Version 1)
Quarter: 2024Q3

REPORT INFORMATION
  Report Type: Spontaneous
  Country: PT (occurrence: None)
  Receive Date: 20240801
  Receipt Date: 20240801
  Transmission Date: 20241017
  Serious: Yes (Hospitalization)
  Sender: ASTRAZENECA
  Company Number: 2024A168518

PATIENT
  Age: 95 Year
  Sex: Female

DRUGS (9)
  1. TAGRISSO [Suspect]
     Active Substance: OSIMERTINIB
     Dosage: 80MG/DAY
     Route: 048
     Dates: start: 20240506
  2. METHYLPREDNISOLONE [Concomitant]
     Active Substance: METHYLPREDNISOLONE
  3. HYDROCHLOROTHIAZIDE\VALSARTAN [Concomitant]
     Active Substance: HYDROCHLOROTHIAZIDE\VALSARTAN
  4. SIMVASTATIN [Concomitant]
     Active Substance: SIMVASTATIN
  5. PENTOXIFYLLINE [Concomitant]
     Active Substance: PENTOXIFYLLINE
  6. PANTOPRAZOLE SODIUM [Concomitant]
     Active Substance: PANTOPRAZOLE SODIUM
  7. RIVAROXABANO [Concomitant]
  8. BISOPROLOL [Concomitant]
     Active Substance: BISOPROLOL\BISOPROLOL FUMARATE
  9. METHYLDOPA [Concomitant]
     Active Substance: METHYLDOPA

REACTIONS (4)
  - Pneumonitis [Recovering/Resolving]
  - Diarrhoea [Recovering/Resolving]
  - Herpes virus infection [Recovering/Resolving]
  - Skin lesion [Recovering/Resolving]

NARRATIVE: CASE EVENT DATE: 20240628
